FAERS Safety Report 17282909 (Version 1)
Quarter: 2020Q1

REPORT INFORMATION
  Report Type: Spontaneous
  Country: US (occurrence: US)
  Receive Date: 20200117
  Receipt Date: 20200117
  Transmission Date: 20200409
  Serious: Yes (Disabling)
  Sender: FDA-Public Use
  Company Number: None

PATIENT
  Age: 62 Year
  Sex: Female
  Weight: 94.5 kg

DRUGS (14)
  1. ALPHA LIPOIC ACID [Concomitant]
     Active Substance: .ALPHA.-LIPOIC ACID
  2. BUPRENORPHIN [Concomitant]
     Active Substance: BUPRENORPHINE
  3. COENZYME Q10 [Concomitant]
     Active Substance: UBIDECARENONE
  4. MAGNESIUM [Concomitant]
     Active Substance: MAGNESIUM
  5. METFORMIN [Concomitant]
     Active Substance: METFORMIN HYDROCHLORIDE
  6. MENTHALATED VITAMIN B^S [Concomitant]
  7. BUPRENORPHINE HYDROCHLORIDE AND NALOXONE HYDROCHLORIDE [Suspect]
     Active Substance: BUPRENORPHINE HYDROCHLORIDE\NALOXONE HYDROCHLORIDE
     Indication: DEPENDENCE
     Dates: start: 20170220, end: 20191228
  8. LOVAZA [Concomitant]
     Active Substance: OMEGA-3-ACID ETHYL ESTERS
  9. ZOLOFT [Concomitant]
     Active Substance: SERTRALINE HYDROCHLORIDE
  10. VITAMINS C [Concomitant]
  11. VITAMINS K2 [Concomitant]
  12. ASPIRIN. [Concomitant]
     Active Substance: ASPIRIN
  13. VITAMIN D3 [Concomitant]
     Active Substance: CHOLECALCIFEROL
  14. DIAZEPAM. [Concomitant]
     Active Substance: DIAZEPAM

REACTIONS (4)
  - Stomatitis [None]
  - Hypertension [None]
  - Oedema peripheral [None]
  - Glossodynia [None]

NARRATIVE: CASE EVENT DATE: 20170220
